FAERS Safety Report 9402414 (Version 1)
Quarter: 2013Q3

REPORT INFORMATION
  Report Type: Spontaneous
  Country: SE (occurrence: SE)
  Receive Date: 20130716
  Receipt Date: 20130716
  Transmission Date: 20140515
  Serious: Yes (Hospitalization, Other)
  Sender: FDA-Public Use
  Company Number: SE-ELI_LILLY_AND_COMPANY-SE201307002509

PATIENT
  Age: 39 Year
  Sex: Female

DRUGS (7)
  1. FLUOXETINE HYDROCHLORIDE [Suspect]
     Dosage: 60 MG, QD
     Route: 048
     Dates: start: 2003
  2. VOXRA [Suspect]
     Dosage: 150 MG, QD
     Dates: start: 201205
  3. STESOLID [Concomitant]
     Dosage: UNK
  4. LEVAXIN [Concomitant]
     Dosage: UNK
  5. IMOVANE [Concomitant]
     Dosage: UNK
  6. STILNOCT [Concomitant]
     Dosage: UNK
  7. LITHIONIT [Concomitant]
     Dosage: UNK

REACTIONS (2)
  - Loss of consciousness [Not Recovered/Not Resolved]
  - Convulsion [Not Recovered/Not Resolved]
